FAERS Safety Report 8697787 (Version 2)
Quarter: 2013Q4

REPORT INFORMATION
  Report Type: Report from Study
  Country: JP (occurrence: JP)
  Receive Date: 20120801
  Receipt Date: 20131023
  Transmission Date: 20140711
  Serious: Yes (Life-Threatening, Hospitalization, Other)
  Sender: FDA-Public Use
  Company Number: JP-CELGENEUS-087-50794-12073241

PATIENT
  Age: 82 Year
  Sex: Female
  Weight: 40 kg

DRUGS (7)
  1. VIDAZA [Suspect]
     Indication: MYELODYSPLASTIC SYNDROME
     Dosage: 75 MILLIGRAM/SQ. METER
     Route: 058
     Dates: start: 20120423, end: 20120429
  2. GRANISETRON [Concomitant]
     Indication: PRODUCT USED FOR UNKNOWN INDICATION
     Route: 065
     Dates: start: 20120207, end: 20120213
  3. ZOFRAN [Concomitant]
     Indication: PRODUCT USED FOR UNKNOWN INDICATION
     Route: 065
     Dates: start: 20120423, end: 20120429
  4. ITRIZOLE [Concomitant]
     Indication: PRODUCT USED FOR UNKNOWN INDICATION
     Route: 065
     Dates: start: 20120425, end: 20120518
  5. MAXIPIME [Concomitant]
     Indication: PRODUCT USED FOR UNKNOWN INDICATION
     Route: 065
     Dates: start: 20120503, end: 20120511
  6. MAXIPIME [Concomitant]
     Route: 065
     Dates: start: 20120515, end: 20120521
  7. GENINAX [Concomitant]
     Indication: PRODUCT USED FOR UNKNOWN INDICATION
     Route: 065
     Dates: start: 20120514, end: 20120514

REACTIONS (3)
  - Blast cell count increased [Not Recovered/Not Resolved]
  - Hepatic function abnormal [Not Recovered/Not Resolved]
  - Febrile neutropenia [Recovering/Resolving]
